FAERS Safety Report 9115945 (Version 1)
Quarter: 2013Q1

REPORT INFORMATION
  Report Type: Spontaneous
  Country: US (occurrence: US)
  Receive Date: 20130225
  Receipt Date: 20130225
  Transmission Date: 20140127
  Serious: Yes (Hospitalization, Other)
  Sender: FDA-Public Use
  Company Number: US-BRISTOL-MYERS SQUIBB COMPANY-17385253

PATIENT
  Age: 56 Year
  Sex: Female
  Weight: 46.71 kg

DRUGS (4)
  1. COUMADIN [Suspect]
  2. NORVASC [Suspect]
     Indication: CARDIAC OPERATION
     Dates: start: 201002
  3. BUMEX [Concomitant]
     Indication: FLUID RETENTION
  4. SYNTHROID [Concomitant]
     Indication: THYROID DISORDER

REACTIONS (3)
  - Gastric disorder [Unknown]
  - Chest discomfort [Unknown]
  - Gastrointestinal haemorrhage [Unknown]
